FAERS Safety Report 6592356-9 (Version None)
Quarter: 2010Q1

REPORT INFORMATION
  Report Type: 
  Country: None (occurrence: None)
  Receive Date: 20100221
  Receipt Date: 20091001
  Transmission Date: 20100710
  Serious: No
  Sender: FDA-Public Use
  Company Number: US-ALLERGAN-0912633US

PATIENT
  Age: 59 Year
  Sex: Female

DRUGS (1)
  1. BOTOX COSMETIC [Suspect]
     Indication: SKIN WRINKLING
     Dosage: 45.25 UNITS, SINGLE
     Route: 030
     Dates: start: 20090908, end: 20090908

REACTIONS (3)
  - EYELID OEDEMA [None]
  - FACE OEDEMA [None]
  - WRONG TECHNIQUE IN DRUG USAGE PROCESS [None]
